FAERS Safety Report 17946433 (Version 10)
Quarter: 2021Q1

REPORT INFORMATION
  Report Type: Spontaneous
  Country: US (occurrence: US)
  Receive Date: 20200626
  Receipt Date: 20210107
  Transmission Date: 20210419
  Serious: Yes (Other)
  Sender: FDA-Public Use
  Company Number: US-GLAXOSMITHKLINE-US2020AMR106675

PATIENT
  Age: 55 Year
  Sex: Female

DRUGS (5)
  1. ZEJULA [Suspect]
     Active Substance: NIRAPARIB
     Dosage: 200 MG, QD
     Route: 065
  2. ZEJULA [Suspect]
     Active Substance: NIRAPARIB
     Dosage: 100 MG, QD
     Route: 065
     Dates: end: 20201125
  3. ZEJULA [Suspect]
     Active Substance: NIRAPARIB
     Dosage: 100 MG, QD
     Route: 048
     Dates: end: 20201230
  4. ZEJULA [Suspect]
     Active Substance: NIRAPARIB
     Indication: OVARIAN CANCER
     Dosage: 100 MG, QD
     Route: 065
     Dates: start: 20200618
  5. ZEJULA [Suspect]
     Active Substance: NIRAPARIB
     Dosage: 200 MG, QD
     Route: 065

REACTIONS (42)
  - Pain [Unknown]
  - Muscle spasms [Unknown]
  - Condition aggravated [Unknown]
  - Hypoaesthesia [Unknown]
  - White blood cell count decreased [Unknown]
  - Red blood cell count decreased [Unknown]
  - Drug intolerance [Unknown]
  - Pain in extremity [Not Recovered/Not Resolved]
  - Fatigue [Unknown]
  - Stress [Unknown]
  - Bruxism [Unknown]
  - Taste disorder [Unknown]
  - Loss of consciousness [Not Recovered/Not Resolved]
  - Swelling [Not Recovered/Not Resolved]
  - Decreased appetite [Unknown]
  - Respiratory rate increased [Unknown]
  - Erythema [Unknown]
  - Anxiety [Unknown]
  - Carbohydrate antigen 125 increased [Unknown]
  - Constipation [Not Recovered/Not Resolved]
  - Oedema [Not Recovered/Not Resolved]
  - Chest discomfort [Unknown]
  - Viral skin infection [Unknown]
  - Joint swelling [Not Recovered/Not Resolved]
  - Exostosis [Not Recovered/Not Resolved]
  - Madarosis [Not Recovered/Not Resolved]
  - Neuropathy peripheral [Unknown]
  - Insomnia [Not Recovered/Not Resolved]
  - Heart rate increased [Unknown]
  - Chillblains [Unknown]
  - Skin disorder [Unknown]
  - Adverse drug reaction [Unknown]
  - Blood test abnormal [Unknown]
  - Frostbite [Unknown]
  - Cardiovascular disorder [Unknown]
  - Skin discolouration [Not Recovered/Not Resolved]
  - Vein discolouration [Not Recovered/Not Resolved]
  - Pruritus [Unknown]
  - Arthralgia [Not Recovered/Not Resolved]
  - Vomiting [Unknown]
  - Bone pain [Unknown]
  - Hair growth abnormal [Unknown]

NARRATIVE: CASE EVENT DATE: 202010
